FAERS Safety Report 14913407 (Version 3)
Quarter: 2021Q1

REPORT INFORMATION
  Report Type: Report from Study
  Country: US (occurrence: US)
  Receive Date: 20180518
  Receipt Date: 20210222
  Transmission Date: 20210419
  Serious: Yes (Other)
  Sender: FDA-Public Use
  Company Number: US-JAZZ-2018-US-006338

PATIENT
  Age: 47 Year
  Sex: Female

DRUGS (51)
  1. WELLBUTRIN [Concomitant]
     Active Substance: BUPROPION HYDROCHLORIDE
  2. METFORMIN HCL [Concomitant]
     Active Substance: METFORMIN HYDROCHLORIDE
  3. VITAMIN B COMPLEX [Concomitant]
     Active Substance: CYANOCOBALAMIN\DEXPANTHENOL\NIACINAMIDE\PYRIDOXINE HYDROCHLORIDE\RIBOFLAVIN 5^-PHOSPHATE SODIUM\THIAMINE HYDROCHLORIDE\VITAMIN B COMPLEX
  4. XYREM [Suspect]
     Active Substance: SODIUM OXYBATE
     Dosage: UNKNOWN DOSE AND DURATION
     Route: 048
     Dates: start: 202101
  5. ARMOUR THYROID [Concomitant]
     Active Substance: THYROID, PORCINE
  6. CYCLOBENZAPRINE. [Concomitant]
     Active Substance: CYCLOBENZAPRINE
  7. ADDERALL [Concomitant]
     Active Substance: AMPHETAMINE ASPARTATE\AMPHETAMINE SULFATE\DEXTROAMPHETAMINE SACCHARATE\DEXTROAMPHETAMINE SULFATE
  8. DHEA [Concomitant]
     Active Substance: PRASTERONE
  9. DEXAMETHASONE. [Concomitant]
     Active Substance: DEXAMETHASONE
  10. MODAFINIL. [Concomitant]
     Active Substance: MODAFINIL
  11. VICODIN [Concomitant]
     Active Substance: ACETAMINOPHEN\HYDROCODONE BITARTRATE
  12. CLONAZEPAM. [Concomitant]
     Active Substance: CLONAZEPAM
  13. ERGOCALCIFEROL. [Concomitant]
     Active Substance: ERGOCALCIFEROL
  14. CYMBALTA [Concomitant]
     Active Substance: DULOXETINE HYDROCHLORIDE
  15. NAPROXEN SODIUM. [Concomitant]
     Active Substance: NAPROXEN SODIUM
  16. XYREM [Suspect]
     Active Substance: SODIUM OXYBATE
     Dosage: 3.75 GRAM, BID
     Route: 048
     Dates: start: 201803
  17. XANAX [Concomitant]
     Active Substance: ALPRAZOLAM
  18. METOCLOPRAMIDE. [Concomitant]
     Active Substance: METOCLOPRAMIDE
  19. SUMATRIPTAN. [Concomitant]
     Active Substance: SUMATRIPTAN
  20. POTASSIUM [Concomitant]
     Active Substance: POTASSIUM
  21. RITALIN [Concomitant]
     Active Substance: METHYLPHENIDATE HYDROCHLORIDE
  22. VALTREX [Concomitant]
     Active Substance: VALACYCLOVIR HYDROCHLORIDE
  23. ALEVE [Concomitant]
     Active Substance: NAPROXEN SODIUM
  24. CYCLOBENZAPRINE HYDROCHLORIDE. [Concomitant]
     Active Substance: CYCLOBENZAPRINE HYDROCHLORIDE
  25. ALPRAZOLAM. [Concomitant]
     Active Substance: ALPRAZOLAM
  26. LEVOTHYROXINE. [Concomitant]
     Active Substance: LEVOTHYROXINE
  27. PROAIR HFA [Concomitant]
     Active Substance: ALBUTEROL SULFATE
  28. TESTOSTERONE. [Concomitant]
     Active Substance: TESTOSTERONE
  29. PROGESTERONE. [Concomitant]
     Active Substance: PROGESTERONE
  30. SPIRONOLACTONE. [Concomitant]
     Active Substance: SPIRONOLACTONE
  31. RESTASIS [Concomitant]
     Active Substance: CYCLOSPORINE
  32. ROPINIROLE HCL [Concomitant]
     Active Substance: ROPINIROLE HYDROCHLORIDE
  33. DILAUDID [Concomitant]
     Active Substance: HYDROMORPHONE HYDROCHLORIDE
  34. FAMOTIDINE. [Concomitant]
     Active Substance: FAMOTIDINE
  35. XYREM [Suspect]
     Active Substance: SODIUM OXYBATE
     Indication: NARCOLEPSY
     Dosage: 2.25 GRAM, BID
     Route: 048
     Dates: start: 201601, end: 201703
  36. SUDAFED 24 HOUR [Suspect]
     Active Substance: PSEUDOEPHEDRINE HYDROCHLORIDE
     Indication: PRODUCT USED FOR UNKNOWN INDICATION
  37. PHYTOMENADIONE [Concomitant]
     Active Substance: PHYTONADIONE
  38. FISH OIL [Concomitant]
     Active Substance: FISH OIL
  39. LYSINE [Concomitant]
     Active Substance: LYSINE
  40. ADIPEX?P [Concomitant]
     Active Substance: PHENTERMINE HYDROCHLORIDE
  41. ACETAMINOPHEN W/HYDROCODONE [Concomitant]
     Active Substance: ACETAMINOPHEN\HYDROCODONE
  42. ONDANSETRON [Concomitant]
     Active Substance: ONDANSETRON
  43. TYLENOL EXTRA STRENGTH [Concomitant]
     Active Substance: ACETAMINOPHEN
  44. XYREM [Suspect]
     Active Substance: SODIUM OXYBATE
     Indication: CATAPLEXY
     Dosage: 3 GRAM, BID
     Route: 048
     Dates: start: 201801, end: 201803
  45. RETINOL [Concomitant]
     Active Substance: RETINOL
  46. CEFALEXIN [Concomitant]
     Active Substance: CEPHALEXIN
  47. VITAMIN D3 [Concomitant]
     Active Substance: CHOLECALCIFEROL
  48. ANDROGEL [Concomitant]
     Active Substance: TESTOSTERONE
  49. CYTOMEL [Concomitant]
     Active Substance: LIOTHYRONINE SODIUM
  50. MELATONIN [Concomitant]
     Active Substance: MELATONIN
  51. PEPCID COMPLETE [Concomitant]
     Active Substance: CALCIUM CARBONATE\FAMOTIDINE\MAGNESIUM HYDROXIDE

REACTIONS (4)
  - Delirium [Unknown]
  - Insomnia [Unknown]
  - Vertigo [Not Recovered/Not Resolved]
  - Dizziness [Not Recovered/Not Resolved]

NARRATIVE: CASE EVENT DATE: 20180417
